FAERS Safety Report 4429788-0 (Version None)
Quarter: 2004Q3

REPORT INFORMATION
  Report Type: 
  Country: None (occurrence: None)
  Receive Date: 20040817
  Receipt Date: 20040810
  Transmission Date: 20050211
  Serious: Yes (Other)
  Sender: FDA-Public Use
  Company Number: 2004220648US

PATIENT
  Age: 52 Year
  Sex: Female

DRUGS (8)
  1. CELEBREX [Suspect]
     Indication: MYALGIA
     Dosage: 200 MG, BID,ORAL
     Route: 048
     Dates: start: 20040601
  2. IMDUR [Concomitant]
  3. ASPIRIN [Concomitant]
  4. COLACE (DOCUSATE SODIUM) [Concomitant]
  5. PAXIL [Concomitant]
  6. PROVENTIL [Concomitant]
  7. MEVACOR [Concomitant]
  8. CARDIZEM [Concomitant]

REACTIONS (6)
  - ARRHYTHMIA SUPRAVENTRICULAR [None]
  - DIZZINESS [None]
  - DYSPNOEA [None]
  - HEART RATE INCREASED [None]
  - HYPERHIDROSIS [None]
  - VENTRICULAR ARRHYTHMIA [None]
